FAERS Safety Report 10449340 (Version 1)
Quarter: 2014Q3

REPORT INFORMATION
  Report Type: Report from Study
  Country: NL (occurrence: NL)
  Receive Date: 20140912
  Receipt Date: 20140912
  Transmission Date: 20150326
  Serious: Yes (Death)
  Sender: FDA-Public Use
  Company Number: PHHY2014NL117673

PATIENT
  Age: 75 Year
  Sex: Male

DRUGS (3)
  1. ACLASTA [Suspect]
     Active Substance: ZOLEDRONIC ACID
     Dosage: 5 MG, ONCE PER 52 WEEKS
     Route: 042
     Dates: start: 20120921
  2. ACLASTA [Suspect]
     Active Substance: ZOLEDRONIC ACID
     Indication: OSTEOPOROSIS
     Dosage: 5 MG, ONCE PER 52 WEEKS
     Route: 042
     Dates: start: 20100910
  3. ACLASTA [Suspect]
     Active Substance: ZOLEDRONIC ACID
     Dosage: 5 MG, ONCE PER 52 WEEKS
     Route: 042
     Dates: start: 20130916

REACTIONS (1)
  - Death [Fatal]

NARRATIVE: CASE EVENT DATE: 20140802
